FAERS Safety Report 24091259 (Version 1)
Quarter: 2024Q3

REPORT INFORMATION
  Report Type: Report from Study
  Country: PL (occurrence: PL)
  Receive Date: 20240715
  Receipt Date: 20240715
  Transmission Date: 20241016
  Serious: Yes (Other)
  Sender: IPSEN
  Company Number: PL-IPSEN Group, Research and Development-2011-3939

PATIENT
  Age: 12 Year
  Sex: Male
  Weight: 44 kg

DRUGS (8)
  1. INCRELEX [Suspect]
     Active Substance: MECASERMIN
     Indication: Severe primary insulin like growth factor-1 deficiency
     Route: 058
     Dates: start: 20091130, end: 20091222
  2. INCRELEX [Suspect]
     Active Substance: MECASERMIN
     Route: 058
     Dates: start: 20091222, end: 20100331
  3. INCRELEX [Suspect]
     Active Substance: MECASERMIN
     Route: 058
     Dates: start: 20100401, end: 20110115
  4. INCRELEX [Suspect]
     Active Substance: MECASERMIN
     Route: 058
     Dates: start: 20110115, end: 20110228
  5. INCRELEX [Suspect]
     Active Substance: MECASERMIN
     Route: 058
     Dates: start: 20110228, end: 20110307
  6. INCRELEX [Suspect]
     Active Substance: MECASERMIN
     Route: 058
     Dates: start: 20110308, end: 20110315
  7. INCRELEX [Suspect]
     Active Substance: MECASERMIN
     Route: 058
     Dates: start: 20110316, end: 20110323
  8. INCRELEX [Suspect]
     Active Substance: MECASERMIN
     Route: 058
     Dates: start: 20110324, end: 20110405

REACTIONS (5)
  - Deafness [Unknown]
  - Glucose tolerance impaired [Unknown]
  - Scoliosis [Unknown]
  - Tonsillar hypertrophy [Unknown]
  - Otitis media [Unknown]

NARRATIVE: CASE EVENT DATE: 20110320
